FAERS Safety Report 5242018-5 (Version None)
Quarter: 2007Q1

REPORT INFORMATION
  Report Type: 
  Country: None (occurrence: None)
  Receive Date: 20070220
  Receipt Date: 20070131
  Transmission Date: 20070707
  Serious: Yes (Other)
  Sender: FDA-Public Use
  Company Number: FR-PFIZER INC-2006143571

PATIENT
  Sex: Female
  Weight: 53 kg

DRUGS (9)
  1. NEURONTIN [Suspect]
     Indication: NEURALGIA
  2. LYRICA [Suspect]
     Indication: NEURALGIA
     Route: 048
     Dates: start: 20061016, end: 20061001
  3. SOTALOL HCL [Concomitant]
     Indication: HYPERTENSION
  4. PLAVIX [Concomitant]
     Indication: THROMBOSIS
  5. PRAXILENE [Concomitant]
     Indication: VASODILATATION
  6. DOLIPRANE [Concomitant]
  7. TEMESTA [Concomitant]
  8. EUPRESSYL [Concomitant]
     Indication: HYPERTENSION
  9. ALDACTAZINE [Concomitant]
     Indication: HYPERTENSION

REACTIONS (3)
  - GENERAL PHYSICAL HEALTH DETERIORATION [None]
  - VERTIGO [None]
  - VOMITING [None]
